FAERS Safety Report 5709108-1 (Version None)
Quarter: 2008Q2

REPORT INFORMATION
  Report Type: 
  Country: None (occurrence: None)
  Receive Date: 20080416
  Receipt Date: 20080416
  Transmission Date: 20081010
  Serious: Yes (Other)
  Sender: FDA-Public Use
  Company Number: None

PATIENT
  Age: 63 Year
  Sex: Male
  Weight: 86.1834 kg

DRUGS (10)
  1. CRESTOR [Suspect]
     Indication: BLOOD CHOLESTEROL INCREASED
     Dates: start: 20080218, end: 20080325
  2. ATENOLOL [Concomitant]
  3. WELLBUTRIN XL [Concomitant]
  4. OMEPRAZOLE [Concomitant]
  5. LIPITOR [Concomitant]
  6. CRESTOR [Concomitant]
  7. ASPIRIN [Concomitant]
  8. VITAMIN CAP [Concomitant]
  9. WINE [Concomitant]
  10. COFFEE [Concomitant]

REACTIONS (13)
  - BLOOD PRESSURE INCREASED [None]
  - CONFUSIONAL STATE [None]
  - FEELING ABNORMAL [None]
  - FLUSHING [None]
  - HEADACHE [None]
  - IMPAIRED DRIVING ABILITY [None]
  - INDIFFERENCE [None]
  - LIBIDO DECREASED [None]
  - MEMORY IMPAIRMENT [None]
  - MUSCLE TIGHTNESS [None]
  - ROAD TRAFFIC ACCIDENT [None]
  - THINKING ABNORMAL [None]
  - TINNITUS [None]
